FAERS Safety Report 19295118 (Version 2)
Quarter: 2021Q3

REPORT INFORMATION
  Report Type: Report from Study
  Country: PK (occurrence: PK)
  Receive Date: 20210524
  Receipt Date: 20210709
  Transmission Date: 20211014
  Serious: Yes (Other)
  Sender: FDA-Public Use
  Company Number: NVSC2021PK112534

PATIENT
  Age: 48 Year
  Sex: Male

DRUGS (3)
  1. MYFORTIC [Suspect]
     Active Substance: MYCOPHENOLATE SODIUM
     Dosage: 720 (2X360) MG, BID
     Route: 048
     Dates: start: 202104
  2. MYFORTIC [Suspect]
     Active Substance: MYCOPHENOLATE SODIUM
     Indication: TRANSPLANT
     Dosage: 360 MG, BID
     Route: 048
     Dates: start: 20200107, end: 202104
  3. SANDIMMUN NEORAL [Suspect]
     Active Substance: CYCLOSPORINE
     Indication: PRODUCT USED FOR UNKNOWN INDICATION
     Dosage: 50 (2X25) MG, BID
     Route: 065

REACTIONS (4)
  - Kidney transplant rejection [Not Recovered/Not Resolved]
  - Micturition urgency [Unknown]
  - Pyrexia [Unknown]
  - Oedema [Unknown]

NARRATIVE: CASE EVENT DATE: 202104
